FAERS Safety Report 17803613 (Version 2)
Quarter: 2020Q2

REPORT INFORMATION
  Report Type: Report from Study
  Country: None (occurrence: US)
  Receive Date: 20200519
  Receipt Date: 20200601
  Transmission Date: 20200714
  Serious: Yes (Hospitalization)
  Sender: FDA-Public Use
  Company Number: US-ABBVIE-20P-163-3406910-00

PATIENT
  Age: 83 Year
  Sex: Female

DRUGS (2)
  1. IMBRUVICA [Suspect]
     Active Substance: IBRUTINIB
     Route: 048
  2. IMBRUVICA [Suspect]
     Active Substance: IBRUTINIB
     Indication: CHRONIC LYMPHOCYTIC LEUKAEMIA
     Route: 048
     Dates: start: 20200508

REACTIONS (3)
  - Hip fracture [Unknown]
  - Dementia Alzheimer^s type [Unknown]
  - Fall [Unknown]

NARRATIVE: CASE EVENT DATE: 20200518
